FAERS Safety Report 7688421-5 (Version None)
Quarter: 2011Q3

REPORT INFORMATION
  Report Type: 
  Country: None (occurrence: None)
  Receive Date: 20110817
  Receipt Date: 20110816
  Transmission Date: 20111222
  Serious: Yes (Other)
  Sender: FDA-Public Use
  Company Number: JP-PFIZER INC-2011187566

PATIENT
  Age: 7 Month
  Sex: Male
  Weight: 7 kg

DRUGS (1)
  1. SOLU-CORTEF [Suspect]
     Indication: BRONCHOPNEUMONIA
     Dosage: 100 MG, 1X/DAY
     Route: 041
     Dates: start: 20110801, end: 20110810

REACTIONS (4)
  - URINARY RETENTION [None]
  - VESICOURETERIC REFLUX [None]
  - URINARY TRACT INFECTION [None]
  - OEDEMA [None]
